FAERS Safety Report 7792889-3 (Version None)
Quarter: 2011Q4

REPORT INFORMATION
  Report Type: 
  Country: None (occurrence: None)
  Receive Date: 20111003
  Receipt Date: 20110923
  Transmission Date: 20120403
  Serious: Yes (Other)
  Sender: FDA-Public Use
  Company Number: BR-BRISTOL-MYERS SQUIBB COMPANY-16106718

PATIENT
  Age: 59 Year
  Sex: Female

DRUGS (1)
  1. HYDREA [Suspect]
     Indication: POLYCYTHAEMIA VERA
     Dosage: 3 CAPSULES OF 500 MG IN 5 WEEKDAYS AND 2 CAPSULES OF 500 MG ON THE OTHER TWO DAYS OF THE WEEK
     Route: 048
     Dates: start: 20060101

REACTIONS (6)
  - ANGIOEDEMA [None]
  - ARRHYTHMIA [None]
  - LARYNGEAL OEDEMA [None]
  - OEDEMA [None]
  - URTICARIA CHRONIC [None]
  - ERYTHEMA [None]
